FAERS Safety Report 5635220-1 (Version None)
Quarter: 2008Q1

REPORT INFORMATION
  Report Type: 
  Country: None (occurrence: None)
  Receive Date: 20080222
  Receipt Date: 20080128
  Transmission Date: 20080703
  Serious: No
  Sender: FDA-Public Use
  Company Number: US-BOEHRINGER INGELHEIM GMBH, GERMANY-2008-BP-01344BP

PATIENT
  Age: 66 Year
  Sex: Female

DRUGS (5)
  1. MICARDIS [Suspect]
     Indication: HYPERTENSION
     Route: 048
     Dates: start: 20070202, end: 20080201
  2. M.V.I. [Concomitant]
  3. ASPIRIN [Concomitant]
  4. ASCORBIC ACID [Concomitant]
  5. VITAMIN E [Concomitant]

REACTIONS (7)
  - ALOPECIA [None]
  - DRY MOUTH [None]
  - EAR DISCOMFORT [None]
  - HYPERTENSION [None]
  - LETHARGY [None]
  - PRURITUS [None]
  - RASH [None]
